FAERS Safety Report 5069542-2 (Version None)
Quarter: 2006Q3

REPORT INFORMATION
  Report Type: 
  Country: None (occurrence: None)
  Receive Date: 20060803
  Receipt Date: 20060728
  Transmission Date: 20061208
  Serious: Yes (Death)
  Sender: FDA-Public Use
  Company Number: US-AVENTIS-200616313US

PATIENT
  Sex: Male
  Weight: 76.36 kg

DRUGS (5)
  1. TAXOTERE [Suspect]
     Indication: PROSTATE CANCER METASTATIC
     Dosage: DOSE: 30MG/M2
     Dates: start: 20060727, end: 20060727
  2. PREDNISONE [Concomitant]
     Route: 048
  3. INDERAL [Concomitant]
     Dosage: DOSE: UNKNOWN
  4. TRIAMTERENE [Concomitant]
     Dosage: DOSE: UNKNOWN
  5. ALLOPURINOL [Concomitant]
     Dosage: DOSE: UNKNOWN

REACTIONS (4)
  - GASTROINTESTINAL HAEMORRHAGE [None]
  - HAEMATOCRIT DECREASED [None]
  - HAEMOGLOBIN DECREASED [None]
  - HAEMOPTYSIS [None]
